FAERS Safety Report 21805076 (Version 2)
Quarter: 2023Q1

REPORT INFORMATION
  Report Type: Spontaneous
  Country: IR (occurrence: IR)
  Receive Date: 20230102
  Receipt Date: 20230116
  Transmission Date: 20230417
  Serious: Yes (Other)
  Sender: FDA-Public Use
  Company Number: IR-ASTELLAS PHARMA EUROPE B.V.-2022US045900

PATIENT
  Age: 71 Year
  Sex: Male
  Weight: 62 kg

DRUGS (3)
  1. VESICARE [Suspect]
     Active Substance: SOLIFENACIN SUCCINATE
     Indication: Micturition urgency
     Route: 048
     Dates: start: 20221223, end: 20221226
  2. TAMSULOSIN HYDROCHLORIDE [Suspect]
     Active Substance: TAMSULOSIN HYDROCHLORIDE
     Indication: Micturition urgency
     Dosage: 0.4 MG, ONCE DAILY
     Route: 048
     Dates: start: 20221223, end: 20221226
  3. LEVOTHYROXINE [Concomitant]
     Active Substance: LEVOTHYROXINE
     Indication: Product used for unknown indication
     Dosage: 0.1 MG, UNKNOWN FREQ.
     Route: 065
     Dates: start: 2007

REACTIONS (3)
  - Tremor [Recovered/Resolved]
  - Palpitations [Recovered/Resolved]
  - Dizziness [Recovered/Resolved]

NARRATIVE: CASE EVENT DATE: 20221224
